FAERS Safety Report 9392167 (Version 3)
Quarter: 2014Q3

REPORT INFORMATION
  Report Type: Report from Study
  Country: JP (occurrence: JP)
  Receive Date: 20130710
  Receipt Date: 20140829
  Transmission Date: 20150326
  Serious: Yes (Death, Life-Threatening, Hospitalization, Disabling, Other)
  Sender: FDA-Public Use
  Company Number: JP-009507513-1307JPN004446

PATIENT
  Age: 63 Year
  Sex: Male

DRUGS (34)
  1. OMEPRAL [Concomitant]
     Active Substance: OMEPRAZOLE
     Indication: PROPHYLAXIS
     Dosage: 10 MG, BID
     Route: 048
     Dates: end: 20120703
  2. ONEALFA [Concomitant]
     Active Substance: ALFACALCIDOL
     Indication: PROPHYLAXIS
     Dosage: 1 MICROGRAM, QD
     Route: 048
     Dates: end: 20120703
  3. MEROPENEM. [Concomitant]
     Active Substance: MEROPENEM
     Dosage: 0.5 G, BID
     Route: 051
     Dates: start: 20120612, end: 20120618
  4. MEROPENEM. [Concomitant]
     Active Substance: MEROPENEM
     Dosage: 0.5 G, BID
     Route: 051
     Dates: start: 20120703, end: 20120710
  5. BAKTAR [Concomitant]
     Active Substance: SULFAMETHOXAZOLE\TRIMETHOPRIM
     Indication: PROPHYLAXIS
     Dosage: 1 DF, QD
     Route: 048
     Dates: end: 20120703
  6. OXYCONTIN [Concomitant]
     Active Substance: OXYCODONE HYDROCHLORIDE
     Indication: PAIN
     Dosage: 10 MG, BID
     Route: 048
     Dates: start: 20120608, end: 20120703
  7. ANHIBA [Concomitant]
     Active Substance: ACETAMINOPHEN
     Indication: PAIN
     Dosage: 400 MG, AS OCCASION ARISES, DAILY DOSAGE UNKNOWN
     Route: 054
     Dates: start: 20120703, end: 20120703
  8. OMEPRAL [Concomitant]
     Active Substance: OMEPRAZOLE
     Indication: PROPHYLAXIS
     Dosage: 20 MG, QD
     Route: 051
     Dates: start: 20120704, end: 20120710
  9. ARTIST [Concomitant]
     Active Substance: CARVEDILOL
     Indication: CARDIAC FAILURE
     Dosage: 2.5 MG, BID
     Route: 048
     Dates: end: 20130703
  10. PREDNISOLONE. [Concomitant]
     Active Substance: PREDNISOLONE
     Indication: INTERSTITIAL LUNG DISEASE
     Dosage: 12.5 MG, QD
     Route: 048
     Dates: end: 20120611
  11. GOSHA-JINKI-GAN [Concomitant]
     Indication: HYPOAESTHESIA
     Dosage: 2.5 G, TID
     Route: 048
     Dates: end: 20120609
  12. LOXONIN [Concomitant]
     Active Substance: LOXOPROFEN SODIUM
     Indication: PAIN
     Dosage: 60 MG, UNK
     Route: 048
     Dates: end: 20120701
  13. GLUFAST [Concomitant]
     Active Substance: MITIGLINIDE
     Indication: DIABETES MELLITUS
     Dosage: 10 MG, TID
     Route: 048
     Dates: end: 20120703
  14. MAGLAX (MAGNESIUM OXIDE) [Concomitant]
     Active Substance: MAGNESIUM OXIDE
     Indication: CONSTIPATION
     Dosage: 330 MG, AS OCCASION ARISES, DAILY DOSAGE UNKNOWN
     Route: 048
     Dates: start: 20120625, end: 20120713
  15. LENDORMIN D [Concomitant]
     Active Substance: BROTIZOLAM
     Indication: INSOMNIA
     Dosage: 0.25 MG, QD
     Route: 048
     Dates: start: 20120614
  16. MEROPENEM. [Concomitant]
     Active Substance: MEROPENEM
     Indication: SKIN INFECTION
     Dosage: 0.5 G, TID
     Route: 051
     Dates: start: 20120608, end: 20120611
  17. MORPHINE HYDROCHLORIDE [Concomitant]
     Active Substance: MORPHINE HYDROCHLORIDE
     Indication: PAIN
     Dosage: DAILY DOSAGE UNKNOWN. AS OCCASION ARISES
     Route: 041
     Dates: start: 20120704, end: 20120714
  18. ROPION [Concomitant]
     Active Substance: FLURBIPROFEN AXETIL
     Indication: PYREXIA
     Dosage: 50 MG, QD
     Route: 051
     Dates: start: 20120705, end: 20120705
  19. ZOLINZA [Suspect]
     Active Substance: VORINOSTAT
     Indication: MYCOSIS FUNGOIDES
     Dosage: 400 MG, QD
     Route: 048
     Dates: start: 20120525, end: 20120609
  20. NOVAMIN (PROCHLORPERAZINE MALEATE) [Concomitant]
     Active Substance: PROCHLORPERAZINE MALEATE
     Indication: NAUSEA
     Dosage: 5 MG, TID
     Dates: start: 20120609, end: 20120619
  21. AMPICILLIN AND SULBACTAM [Concomitant]
     Active Substance: AMPICILLIN SODIUM\SULBACTAM SODIUM
     Indication: SKIN INFECTION
     Dosage: 1.5 G, TID
     Route: 051
     Dates: start: 20120604, end: 20120607
  22. ALLOID G [Concomitant]
     Active Substance: SODIUM ALGINATE
     Indication: GASTRITIS
     Dosage: 20 ML, TID
     Route: 048
     Dates: start: 20120622, end: 20120624
  23. PREDNISOLONE. [Concomitant]
     Active Substance: PREDNISOLONE
     Dosage: 10 MG, QD
     Route: 048
     Dates: start: 20120612, end: 20120703
  24. ALLEGRA [Concomitant]
     Active Substance: FEXOFENADINE HYDROCHLORIDE
     Indication: MYCOSIS FUNGOIDES
     Dosage: 60 MG, BID
     Route: 048
     Dates: end: 20120619
  25. MINOMYCIN [Concomitant]
     Active Substance: MINOCYCLINE HYDROCHLORIDE
     Indication: SKIN INFECTION
     Dosage: 100 MG, BID
     Route: 048
     Dates: start: 20120601, end: 20120608
  26. OXINORM (OXYCODONE HYDROCHLORIDE) [Concomitant]
     Active Substance: OXYCODONE HYDROCHLORIDE
     Indication: PAIN
     Dosage: 2.5 MG, AS OCCASION ARISES, DAILY DOSAGE UNKNOWN
     Route: 048
     Dates: start: 20120608, end: 20120628
  27. PREDONINE [Concomitant]
     Active Substance: PREDNISOLONE\PREDNISOLONE ACETATE\PREDNISOLONE SODIUM SUCCINATE
     Indication: INTERSTITIAL LUNG DISEASE
     Dosage: 20 MG, QD
     Route: 051
     Dates: start: 20120704, end: 20120713
  28. ZOLINZA [Suspect]
     Active Substance: VORINOSTAT
     Dosage: 300 MG, QD
     Route: 048
     Dates: start: 20120619, end: 20120703
  29. HUMULIN N [Concomitant]
     Active Substance: INSULIN HUMAN
     Indication: DIABETES MELLITUS
     Dosage: DAILY DOSAGE UNKNOWN. AS OCCASION ARISES
     Route: 051
     Dates: start: 20120604, end: 20120704
  30. VOLTAREN [Concomitant]
     Active Substance: DICLOFENAC SODIUM
     Indication: PAIN
     Dosage: 25 MG, AS OCCASION ARISES, DAILY DOSAGE UNKNOWN
     Route: 048
     Dates: start: 20120629, end: 20120629
  31. HUMULIN R [Concomitant]
     Active Substance: INSULIN HUMAN
     Indication: DIABETES MELLITUS
     Dosage: DAILY DOSAGE UNKNOWN. AS OCCASION ARISES
     Route: 051
     Dates: start: 20120704, end: 20120713
  32. METHYCOBAL [Concomitant]
     Active Substance: METHYLCOBALAMIN
     Indication: HYPOAESTHESIA
     Dosage: 500 MICROGRAM, TID
     Route: 048
     Dates: end: 20120619
  33. PRIMPERAN [Concomitant]
     Active Substance: METOCLOPRAMIDE HYDROCHLORIDE
     Indication: NAUSEA
     Dosage: 5 MG, TID
     Route: 048
     Dates: start: 20120601, end: 20120619
  34. VITAMEDIN INTRAVENOUS [Concomitant]
     Active Substance: CYANOCOBALAMIN\PYRIDOXINE HYDROCHLORIDE\THIAMINE
     Indication: DYSPHAGIA
     Dosage: 1 DF, QD
     Route: 041
     Dates: start: 20120704, end: 20120709

REACTIONS (9)
  - C-reactive protein increased [Recovering/Resolving]
  - Embolism [Fatal]
  - Platelet count decreased [Recovered/Resolved]
  - Renal impairment [Recovering/Resolving]
  - Platelet count decreased [Recovering/Resolving]
  - Anaemia [Not Recovered/Not Resolved]
  - Pyrexia [Recovering/Resolving]
  - Renal impairment [Recovering/Resolving]
  - Pyrexia [Recovering/Resolving]

NARRATIVE: CASE EVENT DATE: 20120603
